FAERS Safety Report 16862067 (Version 3)
Quarter: 2020Q1

REPORT INFORMATION
  Report Type: Report from Study
  Country: US (occurrence: US)
  Receive Date: 20190927
  Receipt Date: 20200124
  Transmission Date: 20200409
  Serious: Yes (Other)
  Sender: FDA-Public Use
  Company Number: PHEH2019US039825

PATIENT
  Age: 37 Year
  Sex: Male

DRUGS (1)
  1. COSENTYX [Suspect]
     Active Substance: SECUKINUMAB
     Indication: PSORIASIS
     Dosage: 300 MG, QMO
     Route: 058
     Dates: start: 201905

REACTIONS (4)
  - Pain of skin [Unknown]
  - Respiratory tract infection [Recovered/Resolved]
  - Scab [Unknown]
  - Skin plaque [Unknown]

NARRATIVE: CASE EVENT DATE: 201909
